FAERS Safety Report 14755915 (Version 2)
Quarter: 2018Q3

REPORT INFORMATION
  Report Type: Spontaneous
  Country: US (occurrence: US)
  Receive Date: 20180413
  Receipt Date: 20180711
  Transmission Date: 20181010
  Serious: Yes (Other)
  Sender: FDA-Public Use
  Company Number: US-PFIZER INC-2018150912

PATIENT
  Age: 52 Year
  Sex: Female
  Weight: 45.36 kg

DRUGS (2)
  1. XELJANZ [Suspect]
     Active Substance: TOFACITINIB CITRATE
     Indication: RHEUMATOID ARTHRITIS
     Dosage: 5 MG, 2X/DAY
     Route: 048
     Dates: start: 20180122, end: 2018
  2. XELJANZ [Suspect]
     Active Substance: TOFACITINIB CITRATE
     Dosage: 5 MG, 2X/DAY
     Route: 048
     Dates: start: 201803, end: 20180605

REACTIONS (18)
  - Heart rate irregular [Recovering/Resolving]
  - Decreased appetite [Not Recovered/Not Resolved]
  - Pyrexia [Recovered/Resolved with Sequelae]
  - Diarrhoea [Recovering/Resolving]
  - Oropharyngeal pain [Recovered/Resolved]
  - Lip pruritus [Recovered/Resolved]
  - Hypersensitivity [Recovered/Resolved with Sequelae]
  - Weight decreased [Recovered/Resolved with Sequelae]
  - Drug ineffective [Unknown]
  - Dysphonia [Unknown]
  - Hyperhidrosis [Recovered/Resolved with Sequelae]
  - Cardiac disorder [Unknown]
  - Lip swelling [Recovered/Resolved]
  - Chills [Recovered/Resolved with Sequelae]
  - Blister [Recovering/Resolving]
  - Lethargy [Recovering/Resolving]
  - Insomnia [Recovered/Resolved with Sequelae]
  - Cough [Not Recovered/Not Resolved]

NARRATIVE: CASE EVENT DATE: 201801
